FAERS Safety Report 6860034-4 (Version None)
Quarter: 2010Q3

REPORT INFORMATION
  Report Type: 
  Country: None (occurrence: None)
  Receive Date: 20100715
  Receipt Date: 20100709
  Transmission Date: 20110219
  Serious: Yes (Other)
  Sender: FDA-Public Use
  Company Number: TPA2010A03994

PATIENT
  Age: 32 Year
  Sex: Male

DRUGS (1)
  1. DEXILANT [Suspect]
     Indication: DYSPEPSIA
     Dosage: 60 MG, 1 IN 1 D, PER ORAL
     Route: 048
     Dates: start: 20100401, end: 20100708

REACTIONS (1)
  - PANCREATITIS [None]
